FAERS Safety Report 7212208-0 (Version None)
Quarter: 2010Q4

REPORT INFORMATION
  Report Type: 
  Country: None (occurrence: None)
  Receive Date: 20101229
  Receipt Date: 20101220
  Transmission Date: 20110411
  Serious: Yes (Death)
  Sender: FDA-Public Use
  Company Number: FABR-1001122

PATIENT
  Age: 18 Year
  Sex: Male

DRUGS (1)
  1. FABRAZYME [Suspect]
     Indication: FABRY'S DISEASE
     Dosage: 1 MG/KG, Q2W, INTRAVENOUS
     Route: 042
     Dates: end: 20091215

REACTIONS (6)
  - ACUTE PULMONARY OEDEMA [None]
  - CARDIAC ARREST [None]
  - DIARRHOEA [None]
  - DYSURIA [None]
  - HYPOTENSION [None]
  - TACHYCARDIA [None]
